FAERS Safety Report 9176993 (Version 1)
Quarter: 2013Q1

REPORT INFORMATION
  Report Type: Spontaneous
  Country: GB (occurrence: GB)
  Receive Date: 20130321
  Receipt Date: 20130321
  Transmission Date: 20140127
  Serious: Yes (Disabling, Other)
  Sender: FDA-Public Use
  Company Number: GB-ASTRAZENECA-2013SE17274

PATIENT
  Age: 36 Year
  Sex: Female
  Weight: 101.6 kg

DRUGS (5)
  1. QUETIAPINE FUMARATE [Suspect]
     Indication: BIPOLAR I DISORDER
     Route: 048
     Dates: start: 20061001
  2. BECONASE [Concomitant]
  3. CLINITAS [Concomitant]
     Route: 047
  4. COD LIVER OIL [Concomitant]
     Route: 048
  5. ZOPICLONE [Concomitant]

REACTIONS (2)
  - Agoraphobia [Unknown]
  - Weight increased [Not Recovered/Not Resolved]
